FAERS Safety Report 4799868-9 (Version None)
Quarter: 2005Q4

REPORT INFORMATION
  Report Type: 
  Country: None (occurrence: None)
  Receive Date: 20051017
  Receipt Date: 20050913
  Transmission Date: 20060501
  Serious: Yes (Hospitalization, Other)
  Sender: FDA-Public Use
  Company Number: US-BRISTOL-MYERS SQUIBB COMPANY-13109095

PATIENT
  Age: 68 Year
  Sex: Male
  Weight: 101 kg

DRUGS (6)
  1. SINEMET [Suspect]
     Indication: PARKINSON'S DISEASE
     Route: 048
     Dates: start: 20000101
  2. COZAAR [Concomitant]
  3. RITALIN [Concomitant]
  4. ARICEPT [Concomitant]
  5. PAXIL CR [Concomitant]
  6. AMANTADINE [Concomitant]

REACTIONS (19)
  - AMNESIA [None]
  - ANXIETY [None]
  - BRADYKINESIA [None]
  - COGNITIVE DISORDER [None]
  - CONSTIPATION [None]
  - DIFFICULTY IN WALKING [None]
  - ENCEPHALOPATHY [None]
  - FAECALOMA [None]
  - FATIGUE [None]
  - FLUSHING [None]
  - GAIT DISTURBANCE [None]
  - HALLUCINATION, VISUAL [None]
  - IMMUNOGLOBULINS INCREASED [None]
  - MEMORY IMPAIRMENT [None]
  - MUSCLE RIGIDITY [None]
  - MUSCULAR WEAKNESS [None]
  - NERVOUSNESS [None]
  - NIGHTMARE [None]
  - URINARY INCONTINENCE [None]
